FAERS Safety Report 7300393-1 (Version None)
Quarter: 2011Q1

REPORT INFORMATION
  Report Type: 
  Country: None (occurrence: None)
  Receive Date: 20110217
  Receipt Date: 20110214
  Transmission Date: 20110831
  Serious: Yes (Hospitalization)
  Sender: FDA-Public Use
  Company Number: FR-ABBOTT-11P-056-0699177-00

PATIENT
  Sex: Female
  Weight: 59 kg

DRUGS (3)
  1. SOLUPRED [Concomitant]
     Indication: CROHN'S DISEASE
     Route: 048
     Dates: start: 20100101, end: 20100901
  2. HUMIRA [Suspect]
     Indication: CROHN'S DISEASE
     Route: 058
     Dates: start: 20100712, end: 20100815
  3. PENTASA [Concomitant]
     Indication: PRODUCT USED FOR UNKNOWN INDICATION
     Route: 048
     Dates: start: 20100201

REACTIONS (2)
  - ABSCESS INTESTINAL [None]
  - ILEAL PERFORATION [None]
